FAERS Safety Report 16292111 (Version 9)
Quarter: 2021Q4

REPORT INFORMATION
  Report Type: Report from Study
  Country: US (occurrence: US)
  Receive Date: 20190509
  Receipt Date: 20211123
  Transmission Date: 20220303
  Serious: Yes (Life-Threatening, Hospitalization)
  Sender: FDA-Public Use
  Company Number: US-PFIZER INC-2019193340

PATIENT
  Age: 61 Year
  Sex: Female
  Weight: 75 kg

DRUGS (8)
  1. AVELUMAB [Suspect]
     Active Substance: AVELUMAB
     Indication: Ovarian cancer
     Route: 042
     Dates: start: 20181211
  2. AVELUMAB [Suspect]
     Active Substance: AVELUMAB
     Dosage: UNK, CYCLIC (EVERY 2 WEEKS)
     Route: 042
     Dates: start: 20190808, end: 20190822
  3. TALAZOPARIB [Suspect]
     Active Substance: TALAZOPARIB
     Indication: Ovarian cancer
     Route: 048
     Dates: start: 20181211
  4. TALAZOPARIB [Suspect]
     Active Substance: TALAZOPARIB
     Dosage: UNK
     Route: 048
     Dates: start: 20190523, end: 20191113
  5. ELAVIL [Concomitant]
     Active Substance: AMITRIPTYLINE HYDROCHLORIDE
     Indication: Depression
     Route: 048
     Dates: start: 20140403
  6. PROZAC [Concomitant]
     Active Substance: FLUOXETINE HYDROCHLORIDE
     Indication: Depression
     Route: 048
     Dates: start: 20140403
  7. VALACYCLOVIR HYDROCHLORIDE [Concomitant]
     Active Substance: VALACYCLOVIR HYDROCHLORIDE
     Indication: Oral herpes
     Route: 048
     Dates: start: 20190110
  8. CLARITIN [Concomitant]
     Active Substance: LORATADINE
     Indication: Upper-airway cough syndrome
     Route: 048
     Dates: start: 20190418, end: 20191114

REACTIONS (2)
  - Blood creatine phosphokinase increased [Recovered/Resolved]
  - Hypothyroidism [Recovered/Resolved]

NARRATIVE: CASE EVENT DATE: 20190502
